FAERS Safety Report 18343511 (Version 2)
Quarter: 2020Q4

REPORT INFORMATION
  Report Type: Spontaneous
  Country: FR (occurrence: FR)
  Receive Date: 20201005
  Receipt Date: 20201105
  Transmission Date: 20210113
  Serious: No
  Sender: FDA-Public Use
  Company Number: FR-PFIZER INC-2020376390

PATIENT
  Age: 70 Year
  Sex: Male

DRUGS (1)
  1. NIVESTIM [Suspect]
     Active Substance: FILGRASTIM
     Dosage: 48MU/0.5ML , ONE INJECTION ONCE A DAY FOR 6 DAYS
     Dates: start: 202007

REACTIONS (2)
  - Needle issue [Unknown]
  - Drug dose omission by device [Unknown]

NARRATIVE: CASE EVENT DATE: 20200929
